FAERS Safety Report 17361666 (Version 1)
Quarter: 2020Q1

REPORT INFORMATION
  Report Type: Other
  Country: US (occurrence: US)
  Receive Date: 20200203
  Receipt Date: 20200203
  Transmission Date: 20200409
  Serious: Yes (Hospitalization, Other)
  Sender: FDA-Public Use
  Company Number: US-WES PHARMA INC-2079742

PATIENT
  Age: 25 Year
  Sex: Male

DRUGS (1)
  1. OXYCODONE HYDROCHLORIDE. [Suspect]
     Active Substance: OXYCODONE HYDROCHLORIDE
     Indication: PRODUCT USED FOR UNKNOWN INDICATION
     Route: 042

REACTIONS (7)
  - Septic shock [Unknown]
  - Intentional product use issue [Unknown]
  - Pyrexia [Unknown]
  - Foreign body reaction [Unknown]
  - Wrong technique in product usage process [Unknown]
  - Pulmonary granuloma [Unknown]
  - Acute respiratory distress syndrome [Unknown]
